FAERS Safety Report 8759641 (Version 2)
Quarter: 2012Q4

REPORT INFORMATION
  Report Type: 
  Country: DE (occurrence: DE)
  Receive Date: 20120829
  Receipt Date: 20121226
  Transmission Date: 20130627
  Serious: Yes (Hospitalization)
  Sender: FDA-Public Use
  Company Number: DE-AMGEN-DEUSP2012053552

PATIENT
  Sex: Male

DRUGS (16)
  1. NEULASTA [Suspect]
     Indication: B-CELL LYMPHOMA
     Dosage: 6 mg, one time dose
     Route: 058
     Dates: start: 20120730, end: 20120730
  2. RITUXIMAB [Suspect]
     Indication: B-CELL LYMPHOMA
     Dosage: 770 mg, one time dose
     Route: 042
     Dates: start: 20120725, end: 20120725
  3. CYCLOPHOSPHAMIDE [Suspect]
     Indication: B-CELL LYMPHOMA
     Dosage: 1522 mg, one time dose
     Route: 042
     Dates: start: 20120727, end: 20120727
  4. DOXORUBICIN [Suspect]
     Indication: B-CELL LYMPHOMA
     Dosage: 50 mg, one time dose
     Route: 042
     Dates: start: 20120727, end: 20120727
  5. VINCRISTINE [Suspect]
     Indication: B-CELL LYMPHOMA
     Dosage: 4.06 mg, one time dose
     Route: 042
     Dates: start: 20120727, end: 20120727
  6. PREDNISOLONE [Suspect]
     Indication: B-CELL LYMPHOMA
     Dosage: 100 mg, qd
     Dates: start: 20120727, end: 20120731
  7. ASPIRIN [Concomitant]
     Indication: ISCHAEMIC HEART DISEASE PROPHYLAXIS
     Dosage: UNK
     Route: 048
  8. TIOTROPIUM BROMIDE [Concomitant]
     Indication: CHRONIC OBSTRUCTIVE PULMONARY DISEASE
     Dosage: UNK
     Route: 048
  9. FUROSEMIDE [Concomitant]
     Indication: OEDEMA
     Dosage: 20 mg, (once or twice a day)
     Route: 048
  10. FUROSEMIDE [Concomitant]
     Indication: HYPERTENSION
  11. PANTOPRAZOLE SODIUM [Concomitant]
     Indication: PROPHYLAXIS AGAINST GASTROINTESTINAL ULCER
     Dosage: 40 mg, qd
     Route: 048
  12. TRIMETHOPRIM [Concomitant]
     Indication: INFECTION PROPHYLAXIS
     Dosage: 1920 mg, bid
     Route: 048
  13. BRINZOLAMIDE [Concomitant]
     Indication: GLAUCOMA DRUG THERAPY
     Dosage: 1 ml, bid
     Route: 047
  14. ACICLOVIR [Concomitant]
     Indication: INFECTION PROPHYLAXIS
     Dosage: 1600 mg, qid
     Route: 048
  15. SALMETEROL XINAFOATE [Concomitant]
     Indication: CHRONIC OBSTRUCTIVE PULMONARY DISEASE
     Dosage: 250 mug, bid
     Route: 048
  16. AMPHOTERICIN B [Concomitant]
     Indication: INFECTION PROPHYLAXIS
     Dosage: 5 ml, qid
     Route: 048

REACTIONS (1)
  - Chills [Not Recovered/Not Resolved]
